FAERS Safety Report 8200102-8 (Version None)
Quarter: 2012Q1

REPORT INFORMATION
  Report Type: 
  Country: None (occurrence: None)
  Receive Date: 20120312
  Receipt Date: 20120306
  Transmission Date: 20120608
  Serious: Yes (Hospitalization)
  Sender: FDA-Public Use
  Company Number: US-BAYER-2010-001682

PATIENT
  Age: 40 Year
  Sex: Female
  Weight: 58.957 kg

DRUGS (15)
  1. ANTIMIGRAINE PREPARATIONS [Concomitant]
     Indication: MIGRAINE
  2. ANTITHROMBOTIC AGENTS [Concomitant]
     Indication: ANTICOAGULANT THERAPY
  3. TALACEN [Concomitant]
     Dosage: UNK
     Dates: start: 20000101
  4. WELLBUTRIN XL [Concomitant]
     Dosage: 150 MG, QD
     Route: 048
  5. COMBIVENT [Concomitant]
  6. MULTIVITAMINS AND IRON [Concomitant]
     Dosage: UNK UNK, QD
     Route: 048
  7. FIORICET [Concomitant]
     Indication: HEADACHE
     Dosage: UNK UNK, PRN
  8. KEFLEX [Concomitant]
     Dosage: 500 MG, TID
     Route: 048
  9. YASMIN [Suspect]
     Indication: PREMENSTRUAL SYNDROME
     Dosage: UNK
     Dates: start: 20070101, end: 20100101
  10. LEXAPRO [Concomitant]
     Dosage: 20 MG, QD
     Route: 048
  11. YASMIN [Suspect]
  12. YAZ [Suspect]
     Indication: PREMENSTRUAL SYNDROME
     Dosage: UNK
     Dates: start: 20070101, end: 20100101
  13. YAZ [Suspect]
  14. ASPIRIN [Concomitant]
     Dosage: 81 MG, QD
     Route: 048
  15. TORADOL [Concomitant]
     Dosage: 15 MG, UNK

REACTIONS (2)
  - PULMONARY EMBOLISM [None]
  - DEPRESSION [None]
